FAERS Safety Report 8429560-0 (Version None)
Quarter: 2012Q2

REPORT INFORMATION
  Report Type: 
  Country: None (occurrence: None)
  Receive Date: 20120612
  Receipt Date: 20120606
  Transmission Date: 20120825
  Serious: Yes (Other)
  Sender: FDA-Public Use
  Company Number: US-BAYER-2012-051452

PATIENT
  Age: 73 Year
  Sex: Male

DRUGS (1)
  1. SORAFENIB (RAF KINASE INHIBITOR) [Suspect]
     Indication: ANGIOSARCOMA
     Dosage: 400 MG, BID
     Route: 048
     Dates: start: 20120515

REACTIONS (5)
  - PRURITUS GENERALISED [None]
  - DRY SKIN [None]
  - ANGIOSARCOMA [None]
  - SKIN EXFOLIATION [None]
  - FATIGUE [None]
